FAERS Safety Report 13053212 (Version 1)
Quarter: 2016Q4

REPORT INFORMATION
  Report Type: Spontaneous
  Country: US (occurrence: US)
  Receive Date: 20161222
  Receipt Date: 20161222
  Transmission Date: 20170207
  Serious: No
  Sender: FDA-Public Use
  Company Number: US-009507513-1611USA012797

PATIENT
  Age: 7 Month
  Sex: Male

DRUGS (1)
  1. SINEMET [Suspect]
     Active Substance: CARBIDOPA\LEVODOPA
     Dosage: UNK
     Route: 048

REACTIONS (3)
  - Anger [Recovering/Resolving]
  - Poor quality sleep [Recovering/Resolving]
  - Irritability [Recovering/Resolving]
